FAERS Safety Report 4697061-1 (Version None)
Quarter: 2005Q2

REPORT INFORMATION
  Report Type: 
  Country: None (occurrence: None)
  Receive Date: 20050622
  Receipt Date: 20050613
  Transmission Date: 20051028
  Serious: Yes (Other)
  Sender: FDA-Public Use
  Company Number: PHRM2005FR01836

PATIENT
  Age: 42 Year
  Sex: Female

DRUGS (5)
  1. LIORESAL [Suspect]
     Indication: FRIEDREICH'S ATAXIA
     Dosage: 150 MG
     Route: 048
  2. LIORESAL [Suspect]
     Dosage: 30 MG/DAY
     Route: 048
  3. TRAMADOL HCL [Concomitant]
     Route: 048
  4. SPASFON [Concomitant]
     Route: 065
  5. MICROLAX [Concomitant]
     Route: 054

REACTIONS (4)
  - ACCIDENTAL OVERDOSE [None]
  - HYPOTONIA [None]
  - SALIVARY HYPERSECRETION [None]
  - SOMNOLENCE [None]
